FAERS Safety Report 8875626 (Version 1)
Quarter: 2012Q4

REPORT INFORMATION
  Report Type: Report from Study
  Country: US (occurrence: US)
  Receive Date: 20121030
  Receipt Date: 20121030
  Transmission Date: 20130627
  Serious: No
  Sender: FDA-Public Use
  Company Number: US-ABBOTT-11P-163-0874634-00

PATIENT
  Sex: Male
  Weight: 87.62 kg

DRUGS (2)
  1. KALETRA TABLETS [Suspect]
     Indication: HIV INFECTION
     Dates: start: 201109, end: 201111
  2. TRUVADA [Concomitant]
     Indication: HIV INFECTION

REACTIONS (5)
  - Vomiting [Recovered/Resolved]
  - Asthenia [Recovered/Resolved]
  - Dysgeusia [Recovered/Resolved]
  - Nausea [Recovered/Resolved]
  - Frequent bowel movements [Recovered/Resolved]
